FAERS Safety Report 4411840-7 (Version None)
Quarter: 2004Q3

REPORT INFORMATION
  Report Type: 
  Country: None (occurrence: None)
  Receive Date: 20040728
  Receipt Date: 20040716
  Transmission Date: 20050211
  Serious: Yes (Hospitalization)
  Sender: FDA-Public Use
  Company Number: US-JNJFOC-20040502958

PATIENT
  Age: 73 Year
  Sex: Male
  Weight: 78.4723 kg

DRUGS (7)
  1. DURAGESIC [Suspect]
     Indication: PAIN
     Dosage: SEE IMAGE
     Route: 062
     Dates: start: 20040218
  2. DURAGESIC [Suspect]
     Indication: PAIN
     Dosage: SEE IMAGE
     Route: 062
     Dates: start: 20040301
  3. DURAGESIC [Suspect]
     Indication: PAIN
     Dosage: SEE IMAGE
     Route: 062
     Dates: start: 20040501
  4. DURAGESIC [Suspect]
     Indication: PAIN
     Dosage: SEE IMAGE
     Route: 062
     Dates: start: 20040701
  5. NEURONTIN [Concomitant]
  6. OXYCODONE (OXYCODONE) [Concomitant]
  7. TRAMADOL HCL [Concomitant]

REACTIONS (6)
  - DEHYDRATION [None]
  - DISORIENTATION [None]
  - DRUG EFFECT DECREASED [None]
  - DRUG TOLERANCE DECREASED [None]
  - NAUSEA [None]
  - RETCHING [None]
